FAERS Safety Report 10206212 (Version 1)
Quarter: 2014Q2

REPORT INFORMATION
  Report Type: Spontaneous
  Country: US (occurrence: None)
  Receive Date: 20140527
  Receipt Date: 20140527
  Transmission Date: 20141212
  Serious: Yes (Disabling)
  Sender: FDA-Public Use
  Company Number: None

PATIENT
  Age: 74 Year
  Sex: Male
  Weight: 90.72 kg

DRUGS (1)
  1. LOVASTATIN [Suspect]
     Indication: TYPE 2 DIABETES MELLITUS
     Dosage: 1 TAB
     Route: 048
     Dates: start: 20130921, end: 20140228

REACTIONS (11)
  - Myalgia [None]
  - Joint range of motion decreased [None]
  - Joint swelling [None]
  - Peripheral swelling [None]
  - Pyrexia [None]
  - Red blood cell sedimentation rate increased [None]
  - Blood creatine phosphokinase increased [None]
  - Movement disorder [None]
  - Activities of daily living impaired [None]
  - Muscle atrophy [None]
  - Paraesthesia [None]
